FAERS Safety Report 23664524 (Version 1)
Quarter: 2024Q1

REPORT INFORMATION
  Report Type: Spontaneous
  Country: US (occurrence: None)
  Receive Date: 20240322
  Receipt Date: 20240322
  Transmission Date: 20240410
  Serious: Yes (Hospitalization)
  Sender: FDA-Public Use
  Company Number: None

PATIENT
  Age: 58 Year
  Sex: Female
  Weight: 62.8 kg

DRUGS (1)
  1. TENECTEPLASE [Suspect]
     Active Substance: TENECTEPLASE
     Indication: Ischaemic stroke
     Dosage: OTHER FREQUENCY : X1 (ONCE);?
     Route: 040
     Dates: start: 20240311

REACTIONS (5)
  - Cough [None]
  - Nonspecific reaction [None]
  - Pyrexia [None]
  - Sepsis [None]
  - Basal ganglia infarction [None]

NARRATIVE: CASE EVENT DATE: 20240311
